FAERS Safety Report 21041996 (Version 1)
Quarter: 2022Q3

REPORT INFORMATION
  Report Type: Spontaneous
  Country: CZ (occurrence: CZ)
  Receive Date: 20220705
  Receipt Date: 20220705
  Transmission Date: 20221027
  Serious: Yes (Death)
  Sender: FDA-Public Use
  Company Number: CZ-NOVARTISPH-NVSC2022CZ152375

PATIENT

DRUGS (1)
  1. KYMRIAH [Suspect]
     Active Substance: TISAGENLECLEUCEL
     Indication: Diffuse large B-cell lymphoma
     Dosage: UNK UNK, ONCE/SINGLE
     Route: 042
     Dates: start: 20210720

REACTIONS (1)
  - Death [Fatal]

NARRATIVE: CASE EVENT DATE: 20220420
